FAERS Safety Report 13124670 (Version 1)
Quarter: 2017Q1

REPORT INFORMATION
  Report Type: Spontaneous
  Country: US (occurrence: US)
  Receive Date: 20170116
  Receipt Date: 20170116
  Transmission Date: 20170428
  Serious: Yes (Hospitalization)
  Sender: FDA-Public Use
  Company Number: None

PATIENT
  Age: 79 Year
  Sex: Male

DRUGS (15)
  1. OPSUMIT [Suspect]
     Active Substance: MACITENTAN
     Indication: PULMONARY ARTERIAL HYPERTENSION
     Route: 048
     Dates: start: 201601, end: 201612
  2. LASIX [Concomitant]
     Active Substance: FUROSEMIDE
  3. CALCIUM CARBONATE-VITAMIN D3 [Concomitant]
  4. WARFARIN [Concomitant]
     Active Substance: WARFARIN
  5. METFORMIN [Concomitant]
     Active Substance: METFORMIN HYDROCHLORIDE
  6. SPIRONOLACTONE. [Concomitant]
     Active Substance: SPIRONOLACTONE
  7. SENNA [Concomitant]
     Active Substance: SENNA LEAF\SENNOSIDES\SENNOSIDES A AND B
  8. DILTIAZAM CD [Concomitant]
     Active Substance: DILTIAZEM
  9. DEMADEX [Concomitant]
     Active Substance: TORSEMIDE
  10. METOLAZONE. [Concomitant]
     Active Substance: METOLAZONE
  11. LISINOPRIL. [Concomitant]
     Active Substance: LISINOPRIL
  12. COLACE [Concomitant]
     Active Substance: DOCUSATE SODIUM
  13. LIPITOR [Concomitant]
     Active Substance: ATORVASTATIN CALCIUM
  14. REVATIO [Concomitant]
     Active Substance: SILDENAFIL CITRATE
  15. NEURONTIN [Concomitant]
     Active Substance: GABAPENTIN

REACTIONS (7)
  - Acute respiratory failure [None]
  - Pleural effusion [None]
  - Anaemia [None]
  - Urinary tract infection [None]
  - Dyspnoea [None]
  - Waist circumference increased [None]
  - Drug ineffective [None]

NARRATIVE: CASE EVENT DATE: 20161224
